FAERS Safety Report 8840203 (Version 1)
Quarter: 2012Q4

REPORT INFORMATION
  Report Type: Report from Study
  Country: JP (occurrence: JP)
  Receive Date: 20121015
  Receipt Date: 20121015
  Transmission Date: 20130627
  Serious: Yes (Hospitalization)
  Sender: FDA-Public Use
  Company Number: JP-VERTEX PHARMACEUTICAL INC.-AE-2012-010888

PATIENT
  Age: 73 Year
  Sex: Female

DRUGS (19)
  1. VX-950 [Suspect]
     Indication: HEPATITIS C
     Dosage: 2250 mg, qd
     Route: 048
     Dates: start: 20120622, end: 20120629
  2. VX-950 [Suspect]
     Dosage: 1500 mg, qd
     Route: 048
     Dates: start: 20120629, end: 20120703
  3. PEGINTERFERON ALFA-2B [Suspect]
     Indication: HEPATITIS C
     Dosage: 1.3 ?g/kg, UNK
     Route: 058
     Dates: start: 20120622, end: 20120622
  4. PEGINTERFERON ALFA-2B [Suspect]
     Dosage: 60 ?g/kg, UNK
     Route: 058
     Dates: start: 20120629, end: 20120629
  5. RIBAVIRIN [Concomitant]
     Dosage: 200 mg, qd
     Route: 048
     Dates: start: 20120622, end: 20120703
  6. ZETIA [Concomitant]
     Dosage: 10 mg, qd
     Route: 048
     Dates: end: 20120713
  7. NIVADIL [Concomitant]
     Dosage: 8 mg, qd
     Route: 048
     Dates: end: 20120706
  8. MEVAN                              /00880402/ [Concomitant]
     Dosage: 5 mg, qd
     Route: 048
  9. BLOPRESS [Concomitant]
     Dosage: 4 mg, qd
     Route: 048
     Dates: start: 20120628, end: 20120731
  10. BLOPRESS [Concomitant]
     Dosage: 8 mg, qd
     Route: 048
     Dates: start: 20120801
  11. BAYASPIRIN [Concomitant]
     Dosage: 100 mg, qd
     Route: 048
     Dates: end: 20120713
  12. TALION                             /01587402/ [Concomitant]
     Dosage: 20 mg, qd
     Route: 048
     Dates: end: 20120814
  13. SULPIRIDE [Concomitant]
     Dosage: 100 mg, qd
     Route: 048
     Dates: end: 20120705
  14. SULPIRIDE [Concomitant]
     Dosage: 1 g, qd
     Route: 048
     Dates: start: 20120710, end: 20120828
  15. LEXOTAN [Concomitant]
     Dosage: 0.3 g, qd
     Route: 048
     Dates: start: 20120710, end: 20120724
  16. PANVITAN                           /00466101/ [Concomitant]
     Dosage: 2 g, qd
     Route: 048
     Dates: start: 20120710, end: 20120828
  17. JPS HOCHUEKKITO EXTRACT GRANULES FOR ETHICAL USE [Concomitant]
     Dosage: 7.5 g, qd
     Route: 048
     Dates: start: 20120710, end: 20120814
  18. URSODEOXYCHOLIC ACID [Concomitant]
     Dosage: 300 mg, qd
     Route: 048
     Dates: start: 20120731, end: 20120827
  19. URSODEOXYCHOLIC ACID [Concomitant]
     Dosage: 600 mg, qd
     Route: 048
     Dates: start: 20120828

REACTIONS (2)
  - Depression [Recovered/Resolved]
  - Depression [Not Recovered/Not Resolved]
